FAERS Safety Report 7820104-0 (Version None)
Quarter: 2011Q4

REPORT INFORMATION
  Report Type: 
  Country: None (occurrence: None)
  Receive Date: 20111018
  Receipt Date: 20111013
  Transmission Date: 20120403
  Serious: Yes (Other)
  Sender: FDA-Public Use
  Company Number: BR-PFIZER INC-2011245826

PATIENT
  Sex: Female

DRUGS (9)
  1. GLYBURIDE [Concomitant]
     Indication: DIABETES MELLITUS
     Dosage: UNSPECIFIED DOSAGE, TWO TABLETS DAILY
     Dates: start: 20040101
  2. LOSARTAN [Concomitant]
     Indication: HYPERTENSION
     Dosage: UNSPECIFIED DOSAGE, TWO TABLETS DAILY
     Dates: start: 20040101
  3. LYRICA [Suspect]
     Indication: DYSKINESIA
  4. ACTOS [Concomitant]
     Indication: DIABETES MELLITUS
     Dosage: UNSPECIFIED DOSAGE, ONE TABLET DAILY
     Dates: start: 20110401
  5. METFORMIN [Concomitant]
     Indication: DIABETES MELLITUS
     Dosage: 500 MG, ONE TABLET DAILY
     Dates: start: 20040101
  6. LEVOTHYROXINE SODIUM [Concomitant]
     Indication: THYROID THERAPY
     Dosage: UNSPECIFIED DOSAGE, ONE TABLET DAILY
     Dates: start: 20040101
  7. SERTRALINE [Concomitant]
     Indication: DEPRESSION
     Dosage: UNSPECIFIED DOSAGE, TWO TABLETS DAILY
     Dates: start: 19990101
  8. LYRICA [Suspect]
     Indication: PAIN
     Dosage: 75 MG, 1X/DAY
     Route: 048
     Dates: start: 20110925, end: 20111012
  9. ASPIRIN [Concomitant]
     Indication: COAGULOPATHY
     Dosage: UNK
     Dates: start: 20100101

REACTIONS (3)
  - BLOOD GLUCOSE INCREASED [None]
  - THROAT TIGHTNESS [None]
  - VISION BLURRED [None]
